FAERS Safety Report 5325798-X (Version None)
Quarter: 2007Q2

REPORT INFORMATION
  Report Type: 
  Country: None (occurrence: None)
  Receive Date: 20070510
  Receipt Date: 20070425
  Transmission Date: 20071010
  Serious: Yes (Death, Hospitalization)
  Sender: FDA-Public Use
  Company Number: 2007000724

PATIENT
  Age: 83 Year
  Sex: Female

DRUGS (1)
  1. TARCEVA [Suspect]
     Indication: LUNG NEOPLASM MALIGNANT
     Dosage: 150 MG (QD), ORAL
     Route: 048
     Dates: start: 20060407, end: 20060531

REACTIONS (4)
  - HYPONATRAEMIA [None]
  - LEUKOPENIA [None]
  - LUNG NEOPLASM MALIGNANT [None]
  - UPPER GASTROINTESTINAL HAEMORRHAGE [None]
